FAERS Safety Report 25256142 (Version 1)
Quarter: 2025Q2

REPORT INFORMATION
  Report Type: Spontaneous
  Country: US (occurrence: US)
  Receive Date: 20250430
  Receipt Date: 20250430
  Transmission Date: 20250717
  Serious: Yes (Hospitalization)
  Sender: UNITED THERAPEUTICS
  Company Number: US-UNITED THERAPEUTICS-UNT-2025-013756

PATIENT
  Age: 6 Year
  Sex: Male

DRUGS (1)
  1. UNITUXIN [Suspect]
     Active Substance: DINUTUXIMAB
     Indication: Neuroblastoma
     Route: 041

REACTIONS (5)
  - Mydriasis [Recovering/Resolving]
  - Visual acuity reduced [Not Recovered/Not Resolved]
  - Asthenia [Unknown]
  - Decreased activity [Unknown]
  - Somnolence [Unknown]
